FAERS Safety Report 6690757-1 (Version None)
Quarter: 2010Q2

REPORT INFORMATION
  Report Type: 
  Country: None (occurrence: None)
  Receive Date: 20100421
  Receipt Date: 20100413
  Transmission Date: 20101027
  Serious: Yes (Other)
  Sender: FDA-Public Use
  Company Number: BR-PFIZER INC-2010046908

PATIENT
  Age: 26 Year
  Sex: Female

DRUGS (4)
  1. LIPITOR [Suspect]
     Indication: OBESITY
     Dosage: 40 MG, 1X/DAY
     Route: 048
     Dates: start: 20090101
  2. ATENOLOL AND CHLORTHALIDONE [Concomitant]
     Dosage: UNK
     Dates: start: 20090101
  3. PROZAC [Concomitant]
     Dosage: UNK
     Dates: start: 20080101
  4. METFORMIN HYDROCHLORIDE [Concomitant]
     Dosage: UNK
     Dates: start: 20080101

REACTIONS (1)
  - LIVER INJURY [None]
